FAERS Safety Report 14455590 (Version 1)
Quarter: 2018Q1

REPORT INFORMATION
  Report Type: Spontaneous
  Country: GB (occurrence: GB)
  Receive Date: 20180129
  Receipt Date: 20180129
  Transmission Date: 20180509
  Serious: Yes (Other)
  Sender: FDA-Public Use
  Company Number: GB-ALVOGEN-2018-ALVOGEN-094993

PATIENT
  Age: 82 Year
  Sex: Male
  Weight: 92.1 kg

DRUGS (7)
  1. ACETYLSALICYLIC ACID [Concomitant]
     Active Substance: ASPIRIN
  2. BISOPROLOL [Concomitant]
     Active Substance: BISOPROLOL
  3. PRAVASTATIN. [Concomitant]
     Active Substance: PRAVASTATIN
  4. PARACETAMOL [Concomitant]
     Active Substance: ACETAMINOPHEN
  5. LISINOPRIL. [Suspect]
     Active Substance: LISINOPRIL
     Indication: HYPERTENSION
     Route: 048
     Dates: start: 20171208, end: 20180104
  6. SODIUM ALGINATE [Concomitant]
     Active Substance: SODIUM ALGINATE
  7. PREGABALIN. [Concomitant]
     Active Substance: PREGABALIN

REACTIONS (5)
  - Contusion [Not Recovered/Not Resolved]
  - Erythema [Not Recovered/Not Resolved]
  - Mass [Not Recovered/Not Resolved]
  - Pruritus [Not Recovered/Not Resolved]
  - Myalgia [Not Recovered/Not Resolved]

NARRATIVE: CASE EVENT DATE: 20171222
